FAERS Safety Report 12411918 (Version 2)
Quarter: 2016Q2

REPORT INFORMATION
  Report Type: Report from Study
  Country: JP (occurrence: JP)
  Receive Date: 20160527
  Receipt Date: 20160617
  Transmission Date: 20160815
  Serious: Yes (Death, Other)
  Sender: FDA-Public Use
  Company Number: JP-009507513-1605JPN013099

PATIENT
  Age: 4 Decade
  Sex: Male

DRUGS (13)
  1. PYRIMETHAMINE (+) SULFADOXINE [Concomitant]
     Indication: CEREBRAL TOXOPLASMOSIS
     Dosage: 75 MG, QD, FORMULATION: POR
     Route: 048
     Dates: start: 20150414, end: 20150525
  2. DENOSINE [Concomitant]
     Active Substance: GANCICLOVIR
     Indication: CYTOMEGALOVIRUS INFECTION
     Dosage: 5 MG/KG, BID
     Route: 041
     Dates: start: 20150423, end: 20150428
  3. BACTRAMIN [Concomitant]
     Active Substance: SULFAMETHOXAZOLE\TRIMETHOPRIM
     Indication: PROPHYLAXIS
     Dosage: 2 DOSAGE FORM, QD
     Route: 048
     Dates: start: 20150623, end: 20150721
  4. SULFADIAZINE. [Concomitant]
     Active Substance: SULFADIAZINE
     Indication: CEREBRAL TOXOPLASMOSIS
     Dosage: 1500MG, QID; FORMULATION:EXT
     Route: 065
     Dates: start: 20150414, end: 20150525
  5. BACTRAMIN [Concomitant]
     Active Substance: SULFAMETHOXAZOLE\TRIMETHOPRIM
     Indication: TOXOPLASMOSIS PROPHYLAXIS
  6. FLUCONAZOLE. [Concomitant]
     Active Substance: FLUCONAZOLE
     Indication: ORAL CANDIDIASIS
     Dosage: 200 MG, QD
     Route: 065
     Dates: start: 20150708, end: 20150721
  7. EPZICOM [Concomitant]
     Active Substance: ABACAVIR SULFATE\LAMIVUDINE
     Indication: HIV INFECTION
     Dosage: 1 DF, QD (DIVIDED DOSE)
     Route: 048
     Dates: start: 20150430, end: 20150721
  8. E KEPPRA [Concomitant]
     Active Substance: LEVETIRACETAM
     Indication: SEIZURE
     Dosage: 500 MG, BID
     Route: 065
     Dates: start: 20150421, end: 20150721
  9. BETAMETHASONE. [Concomitant]
     Active Substance: BETAMETHASONE
     Indication: BRAIN OEDEMA
     Dosage: 8 MG, QD
     Route: 065
     Dates: start: 20150416, end: 20150507
  10. LEUCOVORIN. [Concomitant]
     Active Substance: LEUCOVORIN
     Indication: PROPHYLAXIS
     Dosage: 10 MG, QD
     Route: 065
     Dates: start: 20150414, end: 20150508
  11. RINDERON V [Concomitant]
     Active Substance: BETAMETHASONE VALERATE
     Indication: BRAIN OEDEMA
     Dosage: 3 MG, QD
     Route: 065
     Dates: start: 20150706, end: 20150721
  12. ISENTRESS [Suspect]
     Active Substance: RALTEGRAVIR POTASSIUM
     Indication: HIV INFECTION
     Dosage: 800 MG, QD, IN DIVIDED DOSES
     Route: 048
     Dates: start: 20150430, end: 20150721
  13. GLYCEREB [Concomitant]
     Indication: BRAIN OEDEMA
     Dosage: 20 MG, QD
     Route: 051
     Dates: start: 20150410, end: 20150511

REACTIONS (2)
  - Intracranial pressure increased [Fatal]
  - White blood cell count decreased [Recovered/Resolved]

NARRATIVE: CASE EVENT DATE: 20150507
